FAERS Safety Report 9315286 (Version 1)
Quarter: 2013Q2

REPORT INFORMATION
  Report Type: Spontaneous
  Country: FR (occurrence: FR)
  Receive Date: 20130529
  Receipt Date: 20130529
  Transmission Date: 20140414
  Serious: Yes (Hospitalization)
  Sender: FDA-Public Use
  Company Number: FR-B.I. PHARMACEUTICALS,INC./RIDGEFIELD-2013-FF-01474FF

PATIENT
  Age: 84 Year
  Sex: Female

DRUGS (17)
  1. CATAPRESSAN [Suspect]
     Dates: start: 20130305, end: 20130305
  2. PARACETAMOL [Suspect]
     Indication: PAIN
     Dosage: 2 G
     Route: 048
     Dates: start: 20130226, end: 20130307
  3. PARACETAMOL [Suspect]
     Indication: PAIN
     Route: 042
     Dates: start: 20130224, end: 20130225
  4. CELEBREX [Suspect]
     Indication: PAIN
     Dosage: 400 MG
     Route: 048
     Dates: start: 20130227, end: 20130307
  5. OMEPRAZOLE [Suspect]
     Route: 048
     Dates: start: 20130227, end: 20130307
  6. RANIPLEX [Suspect]
     Route: 048
     Dates: start: 20130305, end: 20130305
  7. AUGMENTIN [Suspect]
     Dates: start: 201303, end: 20130307
  8. SEVORANE [Suspect]
     Indication: ANAESTHESIA
     Dates: start: 20130305, end: 20130305
  9. SUFENTANIL [Suspect]
     Indication: ANAESTHESIA
     Dates: start: 20130305, end: 20130305
  10. DIPRIVAN [Suspect]
     Indication: ANAESTHESIA
     Dates: start: 20130305, end: 20130305
  11. KETAMINE [Suspect]
     Indication: ANAESTHESIA
     Dates: start: 20130305, end: 20130305
  12. CELESTENE [Suspect]
     Dates: start: 20130305, end: 20130305
  13. EPHEDRINE [Suspect]
     Dates: start: 20130305, end: 20130305
  14. NEOSYNEPHRINE [Suspect]
     Dates: start: 20130305, end: 20130305
  15. DROLEPTAN [Suspect]
     Dates: start: 20130305, end: 20130305
  16. VANCOMYCINE [Suspect]
     Dates: start: 20130305, end: 20130305
  17. MORPHINE [Suspect]
     Dates: start: 20130305, end: 20130305

REACTIONS (2)
  - Hepatocellular injury [Recovered/Resolved]
  - Cholestasis [Recovered/Resolved]
